FAERS Safety Report 4891693-3 (Version None)
Quarter: 2005Q4

REPORT INFORMATION
  Report Type: 
  Country: None (occurrence: None)
  Receive Date: 20051220
  Receipt Date: 20050913
  Transmission Date: 20060501
  Serious: Yes (Other)
  Sender: FDA-Public Use
  Company Number: 417746

PATIENT
  Sex: Female

DRUGS (1)
  1. BONIVA [Suspect]
     Indication: DRUG USE FOR UNKNOWN INDICATION
     Dosage: 1 PER MONTH  ORAL
     Route: 048
     Dates: start: 20050901

REACTIONS (7)
  - BONE PAIN [None]
  - CHEST PAIN [None]
  - MUSCULOSKELETAL CHEST PAIN [None]
  - OEDEMA PERIPHERAL [None]
  - PALPITATIONS [None]
  - WEIGHT INCREASED [None]
  - WHEEZING [None]
